FAERS Safety Report 8844519 (Version 1)
Quarter: 2012Q4

REPORT INFORMATION
  Report Type: Spontaneous
  Country: DK (occurrence: None)
  Receive Date: 20121012
  Receipt Date: 20121012
  Transmission Date: 20130627
  Serious: Yes (Congenital Anomaly)
  Sender: FDA-Public Use
  Company Number: 2012MA012160

PATIENT

DRUGS (3)
  1. LEVETIRACETAM EXTENDED-RELEASE TABLETS [Suspect]
     Route: 064
  2. LAMOTRIGINE [Concomitant]
  3. VALPROIC ACID [Concomitant]

REACTIONS (1)
  - Craniosynostosis [None]
